FAERS Safety Report 9195251 (Version 1)
Quarter: 2013Q1

REPORT INFORMATION
  Report Type: Spontaneous
  Country: US (occurrence: US)
  Receive Date: 20130328
  Receipt Date: 20130328
  Transmission Date: 20140127
  Serious: No
  Sender: FDA-Public Use
  Company Number: US-ALLERGAN-1300450US

PATIENT
  Age: 67 Year
  Sex: Female

DRUGS (5)
  1. LATISSE 0.03% [Suspect]
     Indication: GROWTH OF EYELASHES
     Dosage: 2 GTT, QHS
     Route: 061
  2. CELEXA                             /01400501/ [Concomitant]
     Indication: DEPRESSION
     Dosage: UNK
  3. RITALIN [Concomitant]
     Indication: ATTENTION DEFICIT/HYPERACTIVITY DISORDER
     Dosage: UNK
  4. BLOOD PRESSURE MEDICINE NOS [Concomitant]
     Indication: HYPERTENSION
     Dosage: UNK
  5. PERCOCET                           /00446701/ [Concomitant]
     Indication: PROCEDURAL PAIN
     Dosage: UNK

REACTIONS (1)
  - Blepharal pigmentation [Unknown]
